FAERS Safety Report 9037187 (Version 1)
Quarter: 2013Q1

REPORT INFORMATION
  Report Type: Spontaneous
  Country: US (occurrence: None)
  Receive Date: 20130110
  Receipt Date: 20130110
  Transmission Date: 20140127
  Serious: Yes (Hospitalization, Other)
  Sender: FDA-Public Use
  Company Number: 2012PROUSA02445

PATIENT
  Age: 70 Year
  Sex: Male
  Weight: 72.6 kg

DRUGS (3)
  1. PROVENGE (SIPULEUCEL-T) SUSPENSION, 250ML [Suspect]
     Indication: PROSTATE CANCER METASTATIC
     Route: 042
     Dates: start: 20120426, end: 20120426
  2. LEUPROLIDE (LEUPROLIDE) [Concomitant]
  3. ABIRATERONE ACETATE W/PREDNISOLONE (ABIRATERONE ACETATE W/PREDNISOLONE) [Concomitant]

REACTIONS (15)
  - Subdural haematoma [None]
  - Pneumonia aspiration [None]
  - Supraventricular tachycardia [None]
  - Atrial fibrillation [None]
  - Hypovolaemia [None]
  - Thrombocytopenia [None]
  - Partial seizures [None]
  - Metastases to bone marrow [None]
  - Malignant neoplasm progression [None]
  - Subdural hygroma [None]
  - Hyperglycaemia [None]
  - Asthenia [None]
  - Pain in extremity [None]
  - Adrenal insufficiency [None]
  - Prostate cancer metastatic [None]
